FAERS Safety Report 4951203-9 (Version None)
Quarter: 2006Q1

REPORT INFORMATION
  Report Type: 
  Country: None (occurrence: None)
  Receive Date: 20060315
  Receipt Date: 20060301
  Transmission Date: 20060701
  Serious: Yes (Hospitalization)
  Sender: FDA-Public Use
  Company Number: 2006JP000556

PATIENT
  Age: 20 Year
  Sex: Male

DRUGS (3)
  1. PROGRAF [Suspect]
     Indication: BONE MARROW TRANSPLANT
     Dates: end: 20041001
  2. METHOTREXATE [Concomitant]
  3. ANTIHYMOCYTE IMMUNOGLOBULIN (ANTITHYMOCYTE IMMUNOGLOBULIN) [Concomitant]

REACTIONS (2)
  - GRAFT VERSUS HOST DISEASE [None]
  - MENINGITIS PNEUMOCOCCAL [None]
